FAERS Safety Report 4439506-8 (Version None)
Quarter: 2004Q3

REPORT INFORMATION
  Report Type: 
  Country: None (occurrence: None)
  Receive Date: 20040830
  Receipt Date: 20040816
  Transmission Date: 20050211
  Serious: Yes (Other)
  Sender: FDA-Public Use
  Company Number: 2003002971

PATIENT
  Sex: Female

DRUGS (1)
  1. NEURONTIN [Suspect]
     Indication: CONVULSION
     Dosage: 300 MG (100 MG, TID), ORAL
     Route: 048
     Dates: start: 20021201

REACTIONS (8)
  - ANALGESIC EFFECT [None]
  - ATOPY [None]
  - CIRCULATORY COLLAPSE [None]
  - CONDITION AGGRAVATED [None]
  - CONVULSION [None]
  - GINGIVITIS [None]
  - PYREXIA [None]
  - UNEXPECTED THERAPEUTIC DRUG EFFECT [None]
